FAERS Safety Report 20946818 (Version 1)
Quarter: 2022Q2

REPORT INFORMATION
  Report Type: Spontaneous
  Country: US (occurrence: None)
  Receive Date: 20220610
  Receipt Date: 20220610
  Transmission Date: 20220720
  Serious: Yes (Death)
  Sender: FDA-Public Use
  Company Number: None

PATIENT
  Age: 50 Year
  Sex: Male
  Weight: 564.5 kg

DRUGS (2)
  1. NIVOLUMAB [Suspect]
     Active Substance: NIVOLUMAB
     Indication: Non-small cell lung cancer
     Dosage: OTHER FREQUENCY : Q 14 DAYS;?
     Route: 042
     Dates: start: 20220216, end: 20220504
  2. IPILIMUMAB [Suspect]
     Active Substance: IPILIMUMAB
     Indication: Non-small cell lung cancer
     Dosage: OTHER FREQUENCY : Q 6 WEEKS;?
     Route: 042
     Dates: start: 20220216

REACTIONS (1)
  - Gastric perforation [None]

NARRATIVE: CASE EVENT DATE: 20220609
